FAERS Safety Report 5656192-X (Version None)
Quarter: 2008Q1

REPORT INFORMATION
  Report Type: 
  Country: None (occurrence: None)
  Receive Date: 20080308
  Receipt Date: 20080226
  Transmission Date: 20080703
  Serious: No
  Sender: FDA-Public Use
  Company Number: DE-ELI_LILLY_AND_COMPANY-DE200802006782

PATIENT
  Age: 18 Year
  Sex: Male

DRUGS (2)
  1. ZYPREXA [Suspect]
     Dosage: 5 MG, EACH MORNING
     Route: 048
     Dates: start: 20080101
  2. ZYPREXA [Suspect]
     Dosage: 15 MG, EACH EVENING
     Route: 048
     Dates: start: 20080101

REACTIONS (1)
  - GRANULOCYTOPENIA [None]
